FAERS Safety Report 5034188-9 (Version None)
Quarter: 2006Q2

REPORT INFORMATION
  Report Type: 
  Country: None (occurrence: None)
  Receive Date: 20060626
  Receipt Date: 20060622
  Transmission Date: 20061013
  Serious: Yes (Other)
  Sender: FDA-Public Use
  Company Number: US-GLAXOSMITHKLINE-A0610019A

PATIENT
  Age: 75 Year
  Sex: Female

DRUGS (11)
  1. ADVAIR DISKUS 100/50 [Suspect]
     Indication: CHRONIC OBSTRUCTIVE PULMONARY DISEASE
     Dosage: 1PUFF TWICE PER DAY
     Route: 055
     Dates: start: 20060501
  2. LASIX [Concomitant]
  3. POTASSIUM [Concomitant]
  4. LEVSINEX [Concomitant]
  5. PAXIL [Concomitant]
  6. SYNTHROID [Concomitant]
  7. PREVACID [Concomitant]
  8. TYLENOL (CAPLET) [Concomitant]
  9. ATENOLOL [Concomitant]
  10. TRIMPEX [Concomitant]
  11. AMITRIPTYLINE HCL [Concomitant]

REACTIONS (1)
  - RECTAL HAEMORRHAGE [None]
